FAERS Safety Report 12580132 (Version 2)
Quarter: 2017Q1

REPORT INFORMATION
  Report Type: Spontaneous
  Country: US (occurrence: US)
  Receive Date: 20160721
  Receipt Date: 20170216
  Transmission Date: 20170428
  Serious: Yes (Other)
  Sender: FDA-Public Use
  Company Number: US-LUNDBECK-DKLU2016522

PATIENT
  Age: 44 Year
  Sex: Male

DRUGS (1)
  1. NORTHERA [Suspect]
     Active Substance: DROXIDOPA
     Indication: PRODUCT USED FOR UNKNOWN INDICATION
     Route: 065
     Dates: start: 20160105

REACTIONS (5)
  - Loss of consciousness [Unknown]
  - Drug dose omission [Unknown]
  - Dizziness [Unknown]
  - Blood pressure decreased [Unknown]
  - Fall [Unknown]

NARRATIVE: CASE EVENT DATE: 20160710
